FAERS Safety Report 23041660 (Version 2)
Quarter: 2024Q1

REPORT INFORMATION
  Report Type: Report from Study
  Country: US (occurrence: US)
  Receive Date: 20231007
  Receipt Date: 20240220
  Transmission Date: 20240410
  Serious: Yes (Other)
  Sender: FDA-Public Use
  Company Number: US-002147023-NVSC2023US212372

PATIENT
  Sex: Male

DRUGS (6)
  1. ENTRESTO [Suspect]
     Active Substance: SACUBITRIL\VALSARTAN
     Indication: Product used for unknown indication
     Dosage: 24.26 MG, BID
     Route: 048
     Dates: start: 20230717
  2. METOPROLOL [Suspect]
     Active Substance: METOPROLOL
     Indication: Product used for unknown indication
     Dosage: UNK
     Route: 048
     Dates: start: 202307
  3. METOPROLOL [Suspect]
     Active Substance: METOPROLOL
     Dosage: UNK (REDUCED TO ONE HALF TABLET)
     Route: 048
  4. AMIODARONE [Concomitant]
     Active Substance: AMIODARONE
     Indication: Product used for unknown indication
     Dosage: UNK
     Route: 065
  5. JARDIANCE [Concomitant]
     Active Substance: EMPAGLIFLOZIN
     Indication: Product used for unknown indication
     Dosage: UNK
     Route: 065
  6. ELIQUIS [Concomitant]
     Active Substance: APIXABAN
     Indication: Product used for unknown indication
     Dosage: UNK
     Route: 065

REACTIONS (12)
  - Atrial fibrillation [Unknown]
  - Aneurysm [Recovered/Resolved]
  - Weight decreased [Unknown]
  - Chest pain [Recovering/Resolving]
  - Blood potassium increased [Recovered/Resolved]
  - COVID-19 [Recovering/Resolving]
  - Headache [Unknown]
  - Asthenia [Recovering/Resolving]
  - Gait disturbance [Recovered/Resolved]
  - Fatigue [Recovering/Resolving]
  - Chest discomfort [Recovering/Resolving]
  - Dizziness [Unknown]

NARRATIVE: CASE EVENT DATE: 20230101
